FAERS Safety Report 6128102-2 (Version None)
Quarter: 2009Q1

REPORT INFORMATION
  Report Type: 
  Country: None (occurrence: None)
  Receive Date: 20090320
  Receipt Date: 20090320
  Transmission Date: 20090719
  Serious: No
  Sender: FDA-Public Use
  Company Number: None

PATIENT
  Age: 46 Year
  Sex: Female
  Weight: 65.7716 kg

DRUGS (1)
  1. SPORANOX [Suspect]
     Indication: ONYCHOMYCOSIS
     Dosage: 2 PILLS PER DOSE 2 X DAILY PO
     Route: 048
     Dates: start: 20090226, end: 20090304

REACTIONS (12)
  - BLOOD PRESSURE FLUCTUATION [None]
  - BURNING SENSATION [None]
  - CHEST PAIN [None]
  - CHROMATURIA [None]
  - DRUG HYPERSENSITIVITY [None]
  - GASTROINTESTINAL DISORDER [None]
  - HEART RATE DECREASED [None]
  - HEART RATE INCREASED [None]
  - JOINT SWELLING [None]
  - NAUSEA [None]
  - PARAESTHESIA [None]
  - PYREXIA [None]
